FAERS Safety Report 24025119 (Version 2)
Quarter: 2024Q2

REPORT INFORMATION
  Report Type: Report from Study
  Country: CN (occurrence: CN)
  Receive Date: 20240628
  Receipt Date: 20240628
  Transmission Date: 20240716
  Serious: No
  Sender: FDA-Public Use
  Company Number: CN-ROCHE-3213354

PATIENT
  Age: 30 Year
  Sex: Male
  Weight: 75.0 kg

DRUGS (1)
  1. ALECENSA [Suspect]
     Active Substance: ALECTINIB HYDROCHLORIDE
     Indication: Lung adenocarcinoma
     Dosage: CAPSULES, 150MG* 224CAPSULES (56CAPSULES* 4 SMALL BOXES)
     Route: 048
     Dates: start: 20220906

REACTIONS (6)
  - Hepatic function abnormal [Recovering/Resolving]
  - Constipation [Recovering/Resolving]
  - Sunburn [Recovering/Resolving]
  - Respiratory tract infection [Recovering/Resolving]
  - Cough [Recovering/Resolving]
  - Glomerular filtration rate decreased [Recovered/Resolved]

NARRATIVE: CASE EVENT DATE: 20220906
